FAERS Safety Report 12803088 (Version 1)
Quarter: 2016Q4

REPORT INFORMATION
  Report Type: Spontaneous
  Country: US (occurrence: US)
  Receive Date: 20161003
  Receipt Date: 20161003
  Transmission Date: 20170207
  Serious: Yes (Other)
  Sender: FDA-Public Use
  Company Number: US-BAYER-2016-185657

PATIENT
  Age: 71 Year
  Sex: Female

DRUGS (11)
  1. CEFAZOLIN [Concomitant]
     Active Substance: CEFAZOLIN
     Indication: POSTOPERATIVE WOUND INFECTION
  2. VITAMIN K [Concomitant]
     Active Substance: PHYTONADIONE
  3. CIPROFLOXACIN. [Suspect]
     Active Substance: CIPROFLOXACIN
     Indication: POSTOPERATIVE WOUND INFECTION
  4. CEFAZOLIN [Concomitant]
     Active Substance: CEFAZOLIN
     Indication: URINARY TRACT INFECTION
     Dosage: UNK
  5. ALBUTEROL. [Concomitant]
     Active Substance: ALBUTEROL
     Dosage: UNK
  6. CIPROFLOXACIN. [Suspect]
     Active Substance: CIPROFLOXACIN
     Indication: URINARY TRACT INFECTION
     Dosage: UNK
  7. THROMBIN [Concomitant]
     Active Substance: THROMBIN
  8. ACETYLSALICYLIC ACID [Concomitant]
     Active Substance: ASPIRIN
     Dosage: UNK
  9. ZOLPIDEM [Concomitant]
     Active Substance: ZOLPIDEM\ZOLPIDEM TARTRATE
  10. MONTELUKAST [Concomitant]
     Active Substance: MONTELUKAST SODIUM
     Dosage: UNK
  11. ALPRAZOLAM. [Concomitant]
     Active Substance: ALPRAZOLAM
     Dosage: UNK

REACTIONS (2)
  - Deep vein thrombosis [None]
  - Labelled drug-drug interaction medication error [None]
